FAERS Safety Report 21615974 (Version 1)
Quarter: 2022Q4

REPORT INFORMATION
  Report Type: Spontaneous
  Country: DE (occurrence: DE)
  Receive Date: 20221118
  Receipt Date: 20221118
  Transmission Date: 20230112
  Serious: Yes (Hospitalization)
  Sender: FDA-Public Use
  Company Number: DE-ADRED-08388-01

PATIENT
  Age: 74 Year
  Sex: Female

DRUGS (8)
  1. APIXABAN [Suspect]
     Active Substance: APIXABAN
     Indication: Product used for unknown indication
     Dosage: 5 MG, 1-0-1-0
     Route: 065
  2. ASPIRIN [Suspect]
     Active Substance: ASPIRIN
     Indication: Product used for unknown indication
     Dosage: 100 MG, 1-0-0-0
     Route: 065
  3. SODIUM PERCHLORATE [Concomitant]
     Active Substance: SODIUM PERCHLORATE
     Dosage: 20 DROPS, 1-1-1-0
     Route: 065
  4. FERRO-SANOL DUODENAL [Concomitant]
     Active Substance: FERROUS GLYCINE SULFATE
     Dosage: 1-0-0-0
     Route: 065
  5. ZOLPIDEM [Concomitant]
     Active Substance: ZOLPIDEM TARTRATE
     Dosage: 5 MG, REQUIREMENT
     Route: 065
  6. BISOPROLOL [Concomitant]
     Active Substance: BISOPROLOL
     Dosage: 2.5 MG, 1-0-0-0
     Route: 065
  7. CHOLECALCIFEROL [Concomitant]
     Active Substance: CHOLECALCIFEROL
     Dosage: 20000 IU / WEEK, REGIMEN
     Route: 065
  8. POTASSIUM CITRATE [Concomitant]
     Active Substance: POTASSIUM CITRATE
     Dosage: 1-1-1-0
     Route: 065

REACTIONS (13)
  - General physical health deterioration [Unknown]
  - Dehydration [Unknown]
  - Oedema peripheral [Unknown]
  - Condition aggravated [Unknown]
  - Tachypnoea [Unknown]
  - Systemic infection [Unknown]
  - Electrolyte imbalance [Unknown]
  - Renal impairment [Unknown]
  - Hypotension [Unknown]
  - Haematochezia [Unknown]
  - Lower gastrointestinal haemorrhage [Unknown]
  - Anaemia [Unknown]
  - Nausea [Unknown]
